FAERS Safety Report 14899184 (Version 1)
Quarter: 2018Q2

REPORT INFORMATION
  Report Type: Spontaneous
  Country: FR (occurrence: FR)
  Receive Date: 20180516
  Receipt Date: 20180516
  Transmission Date: 20180711
  Serious: Yes (Other)
  Sender: FDA-Public Use
  Company Number: FR-MERCK KGAA-2047855

PATIENT
  Age: 52 Year
  Sex: Female

DRUGS (2)
  1. NOVOTHYROX [Suspect]
     Active Substance: LEVOTHYROXINE SODIUM
     Indication: AUTOIMMUNE THYROIDITIS
     Dates: start: 201708
  2. LEVOTHYROX NF [Suspect]
     Active Substance: LEVOTHYROXINE SODIUM

REACTIONS (42)
  - Loss of consciousness [None]
  - Nausea [None]
  - Depressed mood [None]
  - Violence-related symptom [None]
  - Hypokinesia [None]
  - Impaired work ability [None]
  - Social avoidant behaviour [None]
  - Headache [None]
  - Constipation [None]
  - Depression [None]
  - Fear [None]
  - Weight increased [None]
  - Fatigue [None]
  - Feeling abnormal [None]
  - Feeling cold [None]
  - Loss of personal independence in daily activities [None]
  - Blood thyroid stimulating hormone abnormal [None]
  - Vertigo positional [None]
  - Personal relationship issue [None]
  - Personal relationship issue [None]
  - Fall [None]
  - Contusion [None]
  - Diarrhoea [None]
  - Myalgia [None]
  - Poor quality sleep [None]
  - Psychiatric symptom [None]
  - Tendon pain [None]
  - Haematoma [None]
  - Social avoidant behaviour [None]
  - Dizziness [None]
  - Abdominal distension [None]
  - Asthenia [Recovering/Resolving]
  - Eye disorder [None]
  - Arthralgia [None]
  - Dyspnoea [None]
  - Decreased interest [None]
  - Head discomfort [None]
  - Malaise [None]
  - Stress [None]
  - Insomnia [None]
  - Gait disturbance [None]
  - Bedridden [Recovering/Resolving]

NARRATIVE: CASE EVENT DATE: 2017
